FAERS Safety Report 9386556 (Version 1)
Quarter: 2013Q3

REPORT INFORMATION
  Report Type: Spontaneous
  Country: US (occurrence: US)
  Receive Date: 20130708
  Receipt Date: 20130708
  Transmission Date: 20140515
  Serious: No
  Sender: FDA-Public Use
  Company Number: US-B.I. PHARMACEUTICALS,INC./RIDGEFIELD-2013-BI-19045BP

PATIENT
  Sex: Female

DRUGS (8)
  1. PRADAXA [Suspect]
     Indication: MEDICAL DEVICE COMPLICATION
     Dosage: 150 MG
     Route: 048
     Dates: start: 2011
  2. AMIODARONE [Concomitant]
     Indication: TACHYCARDIA
     Dates: start: 2004
  3. COREG [Concomitant]
     Indication: MYOCARDIAL INFARCTION
     Dates: start: 2004
  4. ATORVASTATIN [Concomitant]
     Indication: HYPERTENSION
     Dates: start: 2006
  5. LANTUS [Concomitant]
     Indication: DIABETES MELLITUS
     Dosage: 15 U
     Route: 058
     Dates: start: 1999
  6. VITAMIN D [Concomitant]
     Indication: VITAMIN D DECREASED
     Route: 030
     Dates: start: 2012
  7. DIGOXIN [Concomitant]
     Indication: MYOCARDIAL INFARCTION
     Dosage: 125 MG
     Route: 048
     Dates: start: 2004
  8. GLIPIZIDE [Concomitant]
     Indication: DIABETES MELLITUS
     Dosage: 15 MG
     Route: 048
     Dates: start: 1999

REACTIONS (5)
  - Contusion [Not Recovered/Not Resolved]
  - Fall [Recovered/Resolved]
  - Contusion [Recovered/Resolved]
  - Vitamin D abnormal [Not Recovered/Not Resolved]
  - Off label use [Not Recovered/Not Resolved]
